FAERS Safety Report 23513463 (Version 2)
Quarter: 2024Q1

REPORT INFORMATION
  Report Type: Spontaneous
  Country: US (occurrence: US)
  Receive Date: 20240212
  Receipt Date: 20240311
  Transmission Date: 20240410
  Serious: Yes (Other)
  Sender: FDA-Public Use
  Company Number: US-BAYER-2024A020493

PATIENT
  Age: 35 Year
  Sex: Male

DRUGS (2)
  1. JIVI [Suspect]
     Active Substance: DAMOCTOCOG ALFA PEGOL
     Indication: Limb injury
     Dosage: 2600 UNITS (+/- 10%) EVERY WEDNESDAY AND SATURDAY
     Dates: start: 20240107
  2. JIVI [Suspect]
     Active Substance: DAMOCTOCOG ALFA PEGOL
     Indication: Swelling
     Dosage: 2600 UNITS (+/- 10%) EVERY WEDNESDAY AND SATURDAY
     Dates: start: 20240108

REACTIONS (3)
  - Haemorrhage [None]
  - Limb injury [None]
  - Peripheral swelling [None]

NARRATIVE: CASE EVENT DATE: 20240107
